FAERS Safety Report 4569495-7 (Version None)
Quarter: 2005Q1

REPORT INFORMATION
  Report Type: 
  Country: None (occurrence: None)
  Receive Date: 20050201
  Receipt Date: 20050120
  Transmission Date: 20050727
  Serious: Yes (Death, Hospitalization)
  Sender: FDA-Public Use
  Company Number: F06200500001

PATIENT
  Age: 45 Year
  Sex: Male

DRUGS (3)
  1. ELOXATIN - (OXALIPLATIN) - POWDER - 60 MG/M2 [Suspect]
     Indication: OESOPHAGEAL SQUAMOUS CELL CARCINOMA
     Dosage: 60 MG/M2 1/WEEK, INTRAVENOUS DRIP
     Route: 041
     Dates: start: 20041206, end: 20041206
  2. LEUCOVORIN CALCIUM [Suspect]
     Indication: OESOPHAGEAL SQUAMOUS CELL CARCINOMA
     Dosage: 20MG/M2 1/WEEK, INTRAVENOUS BOLUS
     Route: 040
     Dates: start: 20041206, end: 20041206
  3. FLUOROURACIL [Suspect]
     Indication: OESOPHAGEAL SQUAMOUS CELL CARCINOMA
     Dosage: 200 MG/M2 FROM DAY 1 TO 21 AND FROM DAY 28 TO 63, INTRAVNEOUS NOS
     Route: 042

REACTIONS (4)
  - CATATONIA [None]
  - COMA [None]
  - MUCOSAL INFLAMMATION [None]
  - PANCYTOPENIA [None]
